FAERS Safety Report 15622167 (Version 1)
Quarter: 2018Q4

REPORT INFORMATION
  Report Type: Spontaneous
  Country: US (occurrence: US)
  Receive Date: 20181113
  Receipt Date: 20181113
  Transmission Date: 20190205
  Serious: Yes (Other)
  Sender: FDA-Public Use
  Company Number: None

PATIENT
  Age: 57 Year
  Sex: Male
  Weight: 124.3 kg

DRUGS (9)
  1. LIDOCAINE 1% [Concomitant]
     Active Substance: LIDOCAINE
     Dates: start: 20181026, end: 20181026
  2. NITROGLYCERIN 400MCG [Concomitant]
     Dates: start: 20181026, end: 20181026
  3. ALPRAZOLAM 0.25MG [Concomitant]
     Active Substance: ALPRAZOLAM
     Dates: start: 20181026, end: 20181026
  4. MIDAZOLAM 2MG [Concomitant]
     Dates: start: 20181026, end: 20181026
  5. HEPARIN [Suspect]
     Active Substance: HEPARIN SODIUM
     Indication: CATHETERISATION CARDIAC
     Dosage: ?          OTHER FREQUENCY:ONCE;?
     Route: 013
     Dates: start: 20181026, end: 20181026
  6. FENTANYL 50MCG [Concomitant]
     Dates: start: 20181026, end: 20181026
  7. ASPIRIN 81MG [Concomitant]
     Active Substance: ASPIRIN
     Dates: start: 20181026, end: 20181026
  8. IOPAMIDOL 76% [Concomitant]
     Dates: start: 20181026, end: 20181026
  9. VERAPAMIL 5MG [Concomitant]
     Dates: start: 20181026, end: 20181026

REACTIONS (2)
  - Cardiac procedure complication [None]
  - Thrombosis in device [None]

NARRATIVE: CASE EVENT DATE: 20181026
